FAERS Safety Report 23091552 (Version 1)
Quarter: 2023Q4

REPORT INFORMATION
  Report Type: Other
  Country: US (occurrence: US)
  Receive Date: 20231020
  Receipt Date: 20231020
  Transmission Date: 20240110
  Serious: Yes (Other)
  Sender: FDA-Public Use
  Company Number: US-HLS-202301123

PATIENT
  Age: 28 Year
  Sex: Male

DRUGS (4)
  1. CLOZAPINE [Suspect]
     Active Substance: CLOZAPINE
     Indication: Schizoaffective disorder
     Dosage: (75 MG AM, 450 MG HS),
     Route: 065
  2. GLYCOPYRROLATE [Concomitant]
     Active Substance: GLYCOPYRROLATE
     Indication: Salivary hypersecretion
     Dosage: 1 MG DAILY
     Route: 065
  3. FLUVOXAMINE [Concomitant]
     Active Substance: FLUVOXAMINE
     Indication: Product used for unknown indication
     Dosage: 100 MG DAILY
     Route: 065
  4. BUPROPION [Concomitant]
     Active Substance: BUPROPION
     Indication: Product used for unknown indication
     Dosage: 150 MG DAILY
     Route: 065

REACTIONS (7)
  - Weight decreased [Unknown]
  - Chest pain [Unknown]
  - Pulmonary cavitation [Unknown]
  - C-reactive protein increased [Unknown]
  - Dyspnoea [Unknown]
  - Off label use [Unknown]
  - Salivary hypersecretion [Unknown]
